FAERS Safety Report 23497663 (Version 1)
Quarter: 2024Q1

REPORT INFORMATION
  Report Type: Spontaneous
  Country: CN (occurrence: CN)
  Receive Date: 20240208
  Receipt Date: 20240208
  Transmission Date: 20240410
  Serious: Yes (Disabling, Other)
  Sender: FDA-Public Use
  Company Number: CN-PFIZER INC-PV202400016253

PATIENT
  Age: 58 Year
  Sex: Male
  Weight: 65 kg

DRUGS (2)
  1. FRAGMIN [Suspect]
     Active Substance: DALTEPARIN SODIUM
     Indication: Prophylaxis
     Dosage: 5000 IU, 1X/DAY
     Route: 058
     Dates: start: 20231029, end: 20231107
  2. ENOXAPARIN SODIUM [Suspect]
     Active Substance: ENOXAPARIN SODIUM
     Indication: Prophylaxis
     Dosage: 0.3 ML, 1X/DAY
     Route: 058
     Dates: start: 20231107, end: 20231115

REACTIONS (3)
  - Platelet count decreased [Recovering/Resolving]
  - Ecchymosis [Unknown]
  - Erythema [Unknown]

NARRATIVE: CASE EVENT DATE: 20231116
